FAERS Safety Report 7246127-0 (Version None)
Quarter: 2011Q1

REPORT INFORMATION
  Report Type: 
  Country: None (occurrence: None)
  Receive Date: 20110126
  Receipt Date: 20110119
  Transmission Date: 20110831
  Serious: Yes (Other)
  Sender: FDA-Public Use
  Company Number: A0908726A

PATIENT
  Sex: Female

DRUGS (1)
  1. PAXIL [Suspect]
     Route: 048
     Dates: start: 20000101, end: 20090101

REACTIONS (6)
  - MEMORY IMPAIRMENT [None]
  - DEMENTIA [None]
  - PARANOIA [None]
  - ANXIETY [None]
  - BALANCE DISORDER [None]
  - SUICIDAL IDEATION [None]
